FAERS Safety Report 4537429-7 (Version None)
Quarter: 2004Q4

REPORT INFORMATION
  Report Type: 
  Country: None (occurrence: None)
  Receive Date: 20041216
  Receipt Date: 20040505
  Transmission Date: 20050328
  Serious: Yes (Life-Threatening)
  Sender: FDA-Public Use
  Company Number: HQWYE716105MAY04

PATIENT
  Age: 16 Year
  Sex: Female

DRUGS (1)
  1. EFFEXOR XR [Suspect]
     Indication: BULIMIA NERVOSA
     Dosage: 25 PILLS, OVERDOSE AMOUNT, ORAL
     Route: 048
     Dates: start: 20040331, end: 20040331

REACTIONS (7)
  - DRUG INEFFECTIVE FOR UNAPPROVED INDICATION [None]
  - DRUG WITHDRAWAL SYNDROME [None]
  - INSOMNIA [None]
  - INTENTIONAL OVERDOSE [None]
  - NIGHTMARE [None]
  - PRESSURE OF SPEECH [None]
  - SUICIDE ATTEMPT [None]
